FAERS Safety Report 18226706 (Version 1)
Quarter: 2020Q3

REPORT INFORMATION
  Report Type: Spontaneous
  Country: DE (occurrence: DE)
  Receive Date: 20200903
  Receipt Date: 20200903
  Transmission Date: 20201103
  Serious: Yes (Other)
  Sender: FDA-Public Use
  Company Number: NVSC2020DE236521

PATIENT
  Age: 64 Year
  Sex: Male
  Weight: 110 kg

DRUGS (3)
  1. ACETYLSALICYLIC ACID [Concomitant]
     Active Substance: ASPIRIN
     Indication: PRODUCT USED FOR UNKNOWN INDICATION
     Route: 065
  2. BISOPROLOL [Suspect]
     Active Substance: BISOPROLOL
     Indication: PRODUCT USED FOR UNKNOWN INDICATION
     Dosage: UNK, BID
     Route: 065
     Dates: start: 201408
  3. VALSARTAN. [Suspect]
     Active Substance: VALSARTAN
     Indication: PRODUCT USED FOR UNKNOWN INDICATION
     Dosage: UNK UNK, BID
     Route: 065
     Dates: start: 201408

REACTIONS (9)
  - Diabetes mellitus [Unknown]
  - Joint swelling [Not Recovered/Not Resolved]
  - Erectile dysfunction [Unknown]
  - Eructation [Unknown]
  - Hiccups [Unknown]
  - Peripheral nerve palsy [Unknown]
  - Hypertension [Unknown]
  - Depression [Unknown]
  - Pain [Unknown]

NARRATIVE: CASE EVENT DATE: 202004
